FAERS Safety Report 8846507 (Version 1)
Quarter: 2012Q4

REPORT INFORMATION
  Report Type: 
  Country: US (occurrence: US)
  Receive Date: 20121017
  Receipt Date: 20121017
  Transmission Date: 20130627
  Serious: No
  Sender: FDA-Public Use
  Company Number: US-GLAXOSMITHKLINE-A0971400A

PATIENT
  Age: 50 Year
  Sex: Female
  Weight: 68.2 kg

DRUGS (10)
  1. CEFTIN [Suspect]
     Indication: NASOPHARYNGITIS
     Dates: start: 20120106, end: 20120115
  2. HUMIRA [Suspect]
     Indication: RHEUMATOID ARTHRITIS
     Dates: start: 200112
  3. ERGOCALCIFEROL [Concomitant]
  4. ASCORBIC ACID [Concomitant]
  5. FOLIC ACID [Concomitant]
  6. THIAMINE HYDROCHLORIDE [Concomitant]
  7. RETINOL [Concomitant]
  8. RIBOFLAVIN [Concomitant]
  9. NICOTINAMIDE [Concomitant]
  10. PANTHENOL [Concomitant]

REACTIONS (5)
  - Urticaria [Recovered/Resolved]
  - Generalised erythema [Recovered/Resolved]
  - Heart rate increased [Recovered/Resolved]
  - Pruritus [Recovered/Resolved]
  - Throat irritation [Recovered/Resolved]
